FAERS Safety Report 7298019-9 (Version None)
Quarter: 2011Q1

REPORT INFORMATION
  Report Type: 
  Country: None (occurrence: None)
  Receive Date: 20110207
  Receipt Date: 20110104
  Transmission Date: 20110831
  Serious: Yes (Hospitalization, Other)
  Sender: FDA-Public Use
  Company Number: AE11-003C

PATIENT
  Age: 45 Year
  Sex: Male

DRUGS (2)
  1. OPANA ER [Suspect]
     Indication: BACK PAIN
     Dosage: 20MG; 1 IN 1) 12 HR; ORAL
     Route: 048
     Dates: start: 20101201
  2. XODOL (HYDROCODONE BITARTRATE + APAP) 10/300MG TAB [Suspect]
     Indication: BACK PAIN
     Dates: end: 20101201

REACTIONS (4)
  - BLINDNESS TRANSIENT [None]
  - HYPOAESTHESIA [None]
  - POLYURIA [None]
  - DEHYDRATION [None]
